FAERS Safety Report 8237119-3 (Version None)
Quarter: 2012Q1

REPORT INFORMATION
  Report Type: 
  Country: None (occurrence: None)
  Receive Date: 20120327
  Receipt Date: 20120309
  Transmission Date: 20120608
  Serious: Yes (Other)
  Sender: FDA-Public Use
  Company Number: AU-PFIZER INC-2012064802

PATIENT
  Age: 26 Year
  Sex: Female

DRUGS (5)
  1. SERTRALINE [Concomitant]
     Indication: ADJUSTMENT DISORDER
  2. VENLAFAXINE HCL [Suspect]
     Dosage: 300 MG/DAY
  3. FLUOXETINE [Concomitant]
     Indication: ADJUSTMENT DISORDER
  4. VENLAFAXINE HCL [Suspect]
     Indication: ADJUSTMENT DISORDER
     Dosage: 37.5 MG/DAY
  5. CITALOPRAM [Concomitant]
     Indication: ADJUSTMENT DISORDER

REACTIONS (7)
  - SUICIDAL IDEATION [None]
  - MENTAL DISORDER [None]
  - HOMICIDE [None]
  - DRUG LEVEL ABOVE THERAPEUTIC [None]
  - AKATHISIA [None]
  - SUICIDAL BEHAVIOUR [None]
  - AGGRESSION [None]
